FAERS Safety Report 25184694 (Version 2)
Quarter: 2025Q2

REPORT INFORMATION
  Report Type: Report from Study
  Country: KR (occurrence: KR)
  Receive Date: 20250410
  Receipt Date: 20250429
  Transmission Date: 20250717
  Serious: Yes (Hospitalization, Other)
  Sender: JOHNSON AND JOHNSON
  Company Number: KR-JNJFOC-20250376623

PATIENT
  Age: 50 Year
  Sex: Female
  Weight: 58.9 kg

DRUGS (4)
  1. LAZERTINIB [Suspect]
     Active Substance: LAZERTINIB
     Indication: Non-small cell lung cancer
     Route: 048
  2. LAZERTINIB [Suspect]
     Active Substance: LAZERTINIB
     Route: 048
     Dates: start: 20241114, end: 20241209
  3. AMLODIPINE\LOSARTAN [Concomitant]
     Active Substance: AMLODIPINE\LOSARTAN
     Indication: Hypertension
     Dates: start: 20241023
  4. ISOTRETINOIN [Concomitant]
     Active Substance: ISOTRETINOIN
     Dates: start: 20241112, end: 20241129

REACTIONS (2)
  - Drug-induced liver injury [Recovered/Resolved with Sequelae]
  - Pancreatitis acute [Recovering/Resolving]

NARRATIVE: CASE EVENT DATE: 20241209
